FAERS Safety Report 16244715 (Version 1)
Quarter: 2019Q2

REPORT INFORMATION
  Report Type: Spontaneous
  Country: PT (occurrence: PT)
  Receive Date: 20190426
  Receipt Date: 20190426
  Transmission Date: 20190711
  Serious: Yes (Other)
  Sender: FDA-Public Use
  Company Number: PT-BOEHRINGERINGELHEIM-2018-BI-028061

PATIENT
  Age: 39 Year
  Sex: Male
  Weight: 67 kg

DRUGS (4)
  1. CIPROFLOXACIN. [Suspect]
     Active Substance: CIPROFLOXACIN
     Indication: PROSTATITIS
     Dosage: 500 MG, BID
     Route: 065
     Dates: start: 2016
  2. CIPROFLOXACIN. [Suspect]
     Active Substance: CIPROFLOXACIN
     Indication: BENIGN PROSTATIC HYPERPLASIA
     Dosage: UNK
  3. PRADIF [Suspect]
     Active Substance: TAMSULOSIN HYDROCHLORIDE
     Indication: BENIGN PROSTATIC HYPERPLASIA
  4. PRADIF [Suspect]
     Active Substance: TAMSULOSIN HYDROCHLORIDE
     Indication: PROSTATITIS
     Dosage: 0.4 MG, QD
     Route: 065
     Dates: start: 2016

REACTIONS (4)
  - Pollakiuria [Unknown]
  - Micturition urgency [Unknown]
  - Bladder cancer [Unknown]
  - Drug ineffective [Unknown]

NARRATIVE: CASE EVENT DATE: 201604
